FAERS Safety Report 4736623-X (Version None)
Quarter: 2005Q3

REPORT INFORMATION
  Report Type: 
  Country: None (occurrence: None)
  Receive Date: 20050808
  Receipt Date: 20050801
  Transmission Date: 20060218
  Serious: Yes (Death, Hospitalization, Other)
  Sender: FDA-Public Use
  Company Number: 200511696DE

PATIENT
  Age: 54 Year
  Sex: Female
  Weight: 62 kg

DRUGS (4)
  1. TAXOTERE [Suspect]
     Indication: BREAST CANCER
     Dates: start: 20050722, end: 20050722
  2. TAXOTERE [Suspect]
     Indication: CHEMOTHERAPY
     Dates: start: 20050722, end: 20050722
  3. DEXAMETHASONE [Concomitant]
     Dates: start: 20050722, end: 20050722
  4. ZOFRAN [Concomitant]
     Route: 048
     Dates: start: 20050722, end: 20050726

REACTIONS (36)
  - ABDOMINAL PAIN [None]
  - APATHY [None]
  - BLOOD ALBUMIN DECREASED [None]
  - BLOOD CREATINE INCREASED [None]
  - BRADYCARDIA [None]
  - CARDIAC ARREST [None]
  - CYANOSIS [None]
  - DISSEMINATED INTRAVASCULAR COAGULATION [None]
  - DRUG INTERACTION [None]
  - DYSPHAGIA [None]
  - EMBOLISM [None]
  - FAECALOMA [None]
  - GAMMA-GLUTAMYLTRANSFERASE INCREASED [None]
  - GENERAL PHYSICAL HEALTH DETERIORATION [None]
  - HEPATIC ENZYME INCREASED [None]
  - HYPERGLYCAEMIA [None]
  - HYPOKALAEMIA [None]
  - HYPONATRAEMIA [None]
  - HYPOTENSION [None]
  - HYPOXIA [None]
  - LEUKOPENIA [None]
  - LIPASE INCREASED [None]
  - LOBAR PNEUMONIA [None]
  - OROPHARYNGITIS FUNGAL [None]
  - PERIPHERAL COLDNESS [None]
  - PNEUMONIA [None]
  - PNEUMOPERITONEUM [None]
  - PROTEIN TOTAL DECREASED [None]
  - PYREXIA [None]
  - RESPIRATORY FAILURE [None]
  - RHABDOMYOLYSIS [None]
  - SEPSIS [None]
  - SINUS TACHYCARDIA [None]
  - SYSTEMIC INFLAMMATORY RESPONSE SYNDROME [None]
  - THROMBOSIS [None]
  - VENTRICULAR FIBRILLATION [None]
